FAERS Safety Report 5444113-4 (Version None)
Quarter: 2007Q3

REPORT INFORMATION
  Report Type: 
  Country: None (occurrence: None)
  Receive Date: 20070831
  Receipt Date: 20070817
  Transmission Date: 20080115
  Serious: Yes (Hospitalization)
  Sender: FDA-Public Use
  Company Number: S06-CAN-02087-01

PATIENT
  Sex: Female

DRUGS (2)
  1. TIAZAC [Suspect]
  2. BETA BLOCKER (NOS) [Suspect]

REACTIONS (2)
  - BRADYCARDIA [None]
  - DRUG INTERACTION [None]
